FAERS Safety Report 11105010 (Version 1)
Quarter: 2015Q2

REPORT INFORMATION
  Report Type: Spontaneous
  Country: US (occurrence: US)
  Receive Date: 20150511
  Receipt Date: 20150511
  Transmission Date: 20150821
  Serious: Yes (Other)
  Sender: FDA-Public Use
  Company Number: CHPA2015US005954

PATIENT
  Sex: Female

DRUGS (2)
  1. EXCEDRIN MIGRAINE [Suspect]
     Active Substance: ACETAMINOPHEN\ASPIRIN\CAFFEINE
     Indication: MIGRAINE
     Dosage: 1 DF, BID
     Route: 048
     Dates: start: 20150504
  2. EXCEDRIN MIGRAINE [Suspect]
     Active Substance: ACETAMINOPHEN\ASPIRIN\CAFFEINE
     Indication: PRODUCT USED FOR UNKNOWN INDICATION
     Dosage: UNK
     Route: 048
     Dates: start: 2005

REACTIONS (5)
  - Choking sensation [Recovered/Resolved]
  - Expired product administered [Unknown]
  - Breast cancer [Not Recovered/Not Resolved]
  - Incorrect dose administered [Unknown]
  - Headache [Unknown]

NARRATIVE: CASE EVENT DATE: 2014
